FAERS Safety Report 4596075-X (Version None)
Quarter: 2005Q1

REPORT INFORMATION
  Report Type: 
  Country: None (occurrence: None)
  Receive Date: 20050225
  Receipt Date: 20050211
  Transmission Date: 20050727
  Serious: Yes (Hospitalization)
  Sender: FDA-Public Use
  Company Number: 206456

PATIENT
  Age: 75 Year
  Sex: Female
  Weight: 80 kg

DRUGS (4)
  1. HERCEPTIN [Suspect]
     Indication: BREAST CANCER METASTATIC
     Dosage: 438 MG, Q3W, INTRAVENOUS
     Route: 042
     Dates: start: 20040211, end: 20040305
  2. DOCETAXEL              (DOCETAXEL) [Suspect]
     Indication: BREAST CANCER METASTATIC
     Dosage: 127 MG, Q3W, INTRAVENOUS
     Route: 042
     Dates: start: 20040211, end: 20040305
  3. DIAMICRON              (GLICLAZIDE) [Concomitant]
  4. ADIRO         (ASPIRIN) [Concomitant]

REACTIONS (4)
  - ATRIAL FIBRILLATION [None]
  - CARDIAC FAILURE CONGESTIVE [None]
  - DIARRHOEA [None]
  - RENAL FAILURE ACUTE [None]
